FAERS Safety Report 19029480 (Version 3)
Quarter: 2021Q2

REPORT INFORMATION
  Report Type: Spontaneous
  Country: JP (occurrence: JP)
  Receive Date: 20210318
  Receipt Date: 20210630
  Transmission Date: 20210717
  Serious: Yes (Death, Life-Threatening, Other)
  Sender: FDA-Public Use
  Company Number: JP-ROCHE-2741689

PATIENT
  Age: 44 Year
  Sex: Female
  Weight: 72 kg

DRUGS (16)
  1. GRANISETRON [Concomitant]
     Active Substance: GRANISETRON
  2. AVASTIN [Suspect]
     Active Substance: BEVACIZUMAB
     Indication: CERVIX CARCINOMA
     Route: 041
     Dates: start: 20190308, end: 2019
  3. AVASTIN [Suspect]
     Active Substance: BEVACIZUMAB
     Route: 041
     Dates: start: 20190319, end: 20201014
  4. CELECOXIB. [Concomitant]
     Active Substance: CELECOXIB
  5. NARURAPID [Concomitant]
     Active Substance: HYDROMORPHONE HYDROCHLORIDE
  6. IRINOTECAN HYDROCHLORIDE. [Concomitant]
     Active Substance: IRINOTECAN HYDROCHLORIDE
  7. CARBOPLATIN. [Concomitant]
     Active Substance: CARBOPLATIN
     Indication: CERVIX CARCINOMA
     Route: 041
     Dates: start: 20190308, end: 20190815
  8. DEXART [Concomitant]
     Active Substance: DEXAMETHASONE SODIUM PHOSPHATE
  9. NEXIUM [Concomitant]
     Active Substance: ESOMEPRAZOLE MAGNESIUM
  10. LOSARHYD [Concomitant]
     Active Substance: HYDROCHLOROTHIAZIDE\LOSARTAN POTASSIUM
  11. NARUSUS [Concomitant]
     Active Substance: HYDROMORPHONE HYDROCHLORIDE
  12. CISPLATIN. [Concomitant]
     Active Substance: CISPLATIN
  13. PACLITAXEL. [Concomitant]
     Active Substance: PACLITAXEL
     Indication: CERVIX CARCINOMA
     Route: 041
     Dates: start: 20190308, end: 20190815
  14. SEISHOKU [Concomitant]
     Active Substance: SODIUM CHLORIDE
  15. SYMPROIC [Concomitant]
     Active Substance: NALDEMEDINE
  16. BENIDIPINE HYDROCHLORIDE [Concomitant]
     Active Substance: BENIDIPINE HYDROCHLORIDE

REACTIONS (6)
  - Cervix carcinoma [Fatal]
  - Gastrointestinal perforation [Recovering/Resolving]
  - Ileus [Unknown]
  - Abdominal abscess [Unknown]
  - Bladder perforation [Unknown]
  - Metastases to peritoneum [Unknown]

NARRATIVE: CASE EVENT DATE: 20190806
